FAERS Safety Report 18948216 (Version 1)
Quarter: 2021Q1

REPORT INFORMATION
  Report Type: Spontaneous
  Country: CH (occurrence: CH)
  Receive Date: 20210226
  Receipt Date: 20210226
  Transmission Date: 20210420
  Serious: Yes (Hospitalization)
  Sender: FDA-Public Use
  Company Number: CH-PURDUE-USA-2021-0221435

PATIENT
  Age: 77 Year
  Sex: Male

DRUGS (19)
  1. MADOPAR [Concomitant]
     Active Substance: BENSERAZIDE HYDROCHLORIDE\LEVODOPA
     Dosage: UNK
  2. REMDESIVIR. [Concomitant]
     Active Substance: REMDESIVIR
     Indication: COVID-19
     Dosage: 200 MG, SINGLE
     Dates: start: 20201209
  3. PREGABALIN. [Interacting]
     Active Substance: PREGABALIN
     Dosage: 150 MG, DAILY [0?0?0?1]
     Route: 048
  4. IBUPROFEN. [Concomitant]
     Active Substance: IBUPROFEN
     Dosage: UNK
  5. XADAGO [Concomitant]
     Active Substance: SAFINAMIDE MESYLATE
     Dosage: UNK
  6. MOTILIUM [Concomitant]
     Active Substance: DOMPERIDONE
     Dosage: UNK
  7. TRITTICO [Concomitant]
     Active Substance: TRAZODONE HYDROCHLORIDE
     Dosage: UNK
  8. DALTEPARIN [Concomitant]
     Active Substance: DALTEPARIN
     Indication: PULMONARY EMBOLISM
  9. PREGABALIN. [Interacting]
     Active Substance: PREGABALIN
     Indication: PRODUCT USED FOR UNKNOWN INDICATION
     Dosage: 75 MG, BID [1?1?0]
     Route: 048
  10. SPASMO?URGENIN                     /00279501/ [Concomitant]
     Dosage: UNK
  11. PALLADONE [Suspect]
     Active Substance: HYDROMORPHONE HYDROCHLORIDE
     Indication: PRODUCT USED FOR UNKNOWN INDICATION
     Dosage: 8 MG, BID [1?0?0?1]
     Route: 048
     Dates: start: 20201209
  12. ROPINIROLE HYDROCHLORIDE. [Concomitant]
     Active Substance: ROPINIROLE HYDROCHLORIDE
     Dosage: UNK
  13. PANTOZOL [Concomitant]
     Active Substance: PANTOPRAZOLE SODIUM
  14. TAMSULOSIN [Concomitant]
     Active Substance: TAMSULOSIN
     Dosage: UNK
  15. RISPERIDONE. [Concomitant]
     Active Substance: RISPERIDONE
     Dosage: UNK
  16. COMTAN [Concomitant]
     Active Substance: ENTACAPONE
     Dosage: UNK
  17. PALLADONE [Interacting]
     Active Substance: HYDROMORPHONE HYDROCHLORIDE
     Dosage: 8 MG, TID [1?0?0?2]
     Route: 048
     Dates: end: 20201208
  18. ZOLPIDEM [Concomitant]
     Active Substance: ZOLPIDEM TARTRATE
     Dosage: UNK
  19. CO?AMOXICILLIN [Concomitant]
     Active Substance: AMOXICILLIN\CLAVULANATE POTASSIUM
     Indication: PNEUMONIA
     Dosage: UNK
     Dates: start: 20201208

REACTIONS (3)
  - Oxygen saturation decreased [Recovering/Resolving]
  - Disturbance in attention [Recovering/Resolving]
  - Drug interaction [Recovering/Resolving]

NARRATIVE: CASE EVENT DATE: 20201208
